FAERS Safety Report 22917538 (Version 9)
Quarter: 2025Q1

REPORT INFORMATION
  Report Type: Other
  Country: US (occurrence: US)
  Receive Date: 20230907
  Receipt Date: 20250206
  Transmission Date: 20250408
  Serious: Yes (Other)
  Sender: TRAVERE THERAPEUTICS
  Company Number: US-TRAVERE-2023TVT00194

PATIENT
  Age: 47 Year
  Sex: Female
  Weight: 123.38 kg

DRUGS (13)
  1. FILSPARI [Suspect]
     Active Substance: SPARSENTAN
     Indication: IgA nephropathy
     Route: 048
  2. FILSPARI [Suspect]
     Active Substance: SPARSENTAN
     Route: 048
  3. FILSPARI [Suspect]
     Active Substance: SPARSENTAN
     Route: 048
     Dates: start: 20230526
  4. FILSPARI [Suspect]
     Active Substance: SPARSENTAN
     Route: 048
  5. Pepto-bismol 262mg/15ml oral susp [Concomitant]
  6. Tums 200 (500)mg tab chew [Concomitant]
  7. IBUPROFEN [Concomitant]
     Active Substance: IBUPROFEN
  8. TYLENOL [Concomitant]
     Active Substance: ACETAMINOPHEN
  9. Advil 200mg capsule [Concomitant]
  10. VITAMIN D3 [Concomitant]
     Active Substance: CHOLECALCIFEROL
  11. OZEMPIC [Concomitant]
     Active Substance: SEMAGLUTIDE
  12. VALSARTAN [Concomitant]
     Active Substance: VALSARTAN
  13. NICARDIPINE HYDROCHLORIDE [Concomitant]
     Active Substance: NICARDIPINE HYDROCHLORIDE

REACTIONS (25)
  - Renal impairment [Recovering/Resolving]
  - Oropharyngeal pain [Unknown]
  - Cough [Unknown]
  - Bronchitis [Unknown]
  - Nasal congestion [Unknown]
  - Productive cough [Unknown]
  - Fatigue [Unknown]
  - Drug ineffective [Unknown]
  - Product dose omission issue [Unknown]
  - Vomiting [None]
  - Headache [Unknown]
  - Brain fog [None]
  - Dyspepsia [Unknown]
  - Irritability [Unknown]
  - Tinnitus [Unknown]
  - Blood pressure increased [Unknown]
  - Weight increased [Unknown]
  - Hyperhidrosis [Unknown]
  - Somnolence [Unknown]
  - Asthenia [Unknown]
  - Blood glucose increased [Unknown]
  - Dizziness [None]
  - Drug effect less than expected [Unknown]
  - Skin hyperpigmentation [Unknown]
  - Rash macular [Unknown]

NARRATIVE: CASE EVENT DATE: 20231001
